FAERS Safety Report 24375836 (Version 1)
Quarter: 2024Q3

REPORT INFORMATION
  Report Type: Spontaneous
  Country: US (occurrence: US)
  Receive Date: 20240928
  Receipt Date: 20240928
  Transmission Date: 20241017
  Serious: Yes (Death, Life-Threatening, Hospitalization, Other)
  Sender: AMGEN
  Company Number: US-AMGEN-USASP2024190776

PATIENT
  Age: 76 Year
  Sex: Female

DRUGS (4)
  1. PREDNISONE [Suspect]
     Active Substance: PREDNISONE
     Indication: Rheumatoid arthritis-associated interstitial lung disease
     Dosage: 5 MILLIGRAM, QD
     Route: 065
  2. OXYGEN [Concomitant]
     Active Substance: OXYGEN
     Indication: Rheumatoid arthritis-associated interstitial lung disease
  3. METHOTREXATE [Concomitant]
     Active Substance: METHOTREXATE
     Indication: Rheumatoid arthritis-associated interstitial lung disease
     Dosage: 10 MILLIGRAM, QD
  4. HYDROXYCHLOROQUINE [Concomitant]
     Active Substance: HYDROXYCHLOROQUINE
     Indication: Rheumatoid arthritis-associated interstitial lung disease
     Dosage: 200 MILLIGRAM, QD

REACTIONS (7)
  - Multiple organ dysfunction syndrome [Fatal]
  - Respiratory failure [Unknown]
  - Rheumatoid arthritis-associated interstitial lung disease [Unknown]
  - COVID-19 pneumonia [Unknown]
  - Mycobacterium tuberculosis complex test positive [Unknown]
  - Pulmonary embolism [Unknown]
  - Acute respiratory distress syndrome [Unknown]
